FAERS Safety Report 10091733 (Version 1)
Quarter: 2014Q2

REPORT INFORMATION
  Report Type: Spontaneous
  Country: US (occurrence: US)
  Receive Date: 20140421
  Receipt Date: 20140421
  Transmission Date: 20141212
  Serious: No
  Sender: FDA-Public Use
  Company Number: US-PURDUE-USA-2003-0007569

PATIENT
  Age: 51 Year
  Sex: Female

DRUGS (2)
  1. OXYIR CAPSULES 5 MG [Suspect]
     Indication: PAIN
     Dosage: UNK CAP, SEE TEXT
     Route: 048
  2. UNKNOWN [Concomitant]

REACTIONS (1)
  - Drug ineffective [None]
